FAERS Safety Report 9914626 (Version 1)
Quarter: 2014Q1

REPORT INFORMATION
  Report Type: Report from Study
  Country: BR (occurrence: BR)
  Receive Date: 20140220
  Receipt Date: 20140220
  Transmission Date: 20141002
  Serious: Yes (Other)
  Sender: FDA-Public Use
  Company Number: PHHY2014BR018974

PATIENT
  Age: 2 Year
  Sex: Female
  Weight: 14.4 kg

DRUGS (4)
  1. EXJADE [Suspect]
     Indication: SICKLE CELL ANAEMIA
     Dosage: 1 DF, QD
     Dates: start: 201306
  2. AAS [Concomitant]
     Indication: BLOOD DISORDER
     Dosage: 0.5 DF, QD
  3. FOLIC ACID [Concomitant]
     Indication: HYPOVITAMINOSIS
     Dosage: UNK UKN, 3 TIMES A WEEK
  4. PHENOBARBITAL [Concomitant]
     Indication: CONVULSION
     Dosage: 40 DRP, AT NIGHT

REACTIONS (3)
  - Convulsion [Recovered/Resolved]
  - Iron overload [Recovered/Resolved]
  - Vomiting [Recovered/Resolved]
